FAERS Safety Report 7300818-1 (Version None)
Quarter: 2011Q1

REPORT INFORMATION
  Report Type: 
  Country: None (occurrence: None)
  Receive Date: 20110218
  Receipt Date: 20110208
  Transmission Date: 20110831
  Serious: Yes (Hospitalization)
  Sender: FDA-Public Use
  Company Number: AU-B.I. PHARMACEUTICALS,INC./RIDGEFIELD-2011-AU-00063AU

PATIENT
  Sex: Female
  Weight: 113 kg

DRUGS (8)
  1. NORVASC [Suspect]
  2. ARATAC [Concomitant]
  3. SIFROL [Suspect]
     Indication: RESTLESS LEGS SYNDROME
     Dosage: 500 MCG
     Dates: start: 20100826, end: 20110101
  4. MINIPRESS [Suspect]
  5. ZOLOFT [Concomitant]
  6. DIGOXIN [Concomitant]
  7. WARFARIN [Concomitant]
  8. KARVEZIDE [Concomitant]

REACTIONS (1)
  - OEDEMA PERIPHERAL [None]
